FAERS Safety Report 14968115 (Version 2)
Quarter: 2019Q2

REPORT INFORMATION
  Report Type: Spontaneous
  Country: FR (occurrence: FR)
  Receive Date: 20180604
  Receipt Date: 20190618
  Transmission Date: 20190711
  Serious: Yes (Hospitalization, Other)
  Sender: FDA-Public Use
  Company Number: FR-ACCORD-067696

PATIENT
  Age: 60 Year
  Sex: Female

DRUGS (7)
  1. OXYBUTYNIN/OXYBUTYNIN HYDROCHLORIDE [Interacting]
     Active Substance: OXYBUTYNIN
     Indication: SECONDARY PROGRESSIVE MULTIPLE SCLEROSIS
     Dosage: UNK
     Route: 065
  2. FAMPRIDINE [Interacting]
     Active Substance: DALFAMPRIDINE
     Indication: SECONDARY PROGRESSIVE MULTIPLE SCLEROSIS
     Dosage: DALFAMPRIDINE
     Route: 065
     Dates: start: 2013
  3. NITROFURANTOIN/NITROFURANTOIN SODIUM [Concomitant]
     Indication: RELAPSING-REMITTING MULTIPLE SCLEROSIS
     Dosage: UNK
     Route: 065
     Dates: start: 2013
  4. BIOTIN [Interacting]
     Active Substance: BIOTIN
     Indication: RELAPSING-REMITTING MULTIPLE SCLEROSIS
     Dosage: 100 MILLIGRAM, TID
     Route: 048
     Dates: start: 2016, end: 2016
  5. QIZENDAY [Concomitant]
     Active Substance: BIOTIN
     Indication: MULTIPLE SCLEROSIS
     Dosage: UNK
     Route: 065
  6. BACLOFEN. [Interacting]
     Active Substance: BACLOFEN
     Indication: SECONDARY PROGRESSIVE MULTIPLE SCLEROSIS
     Dosage: UNK ALSO RECEIVED 30 MG (INTERVAL 1 DAYS), 70 MG
     Route: 065
  7. DALFAMPRIDINE. [Suspect]
     Active Substance: DALFAMPRIDINE
     Indication: PRODUCT USED FOR UNKNOWN INDICATION
     Dosage: 10 MG,Q8H, 10 MG (INTERVAL 1 DAYS) FROM 2013 FOR 1460 DAYS
     Route: 065

REACTIONS (5)
  - Altered state of consciousness [Not Recovered/Not Resolved]
  - Myoclonus [Not Recovered/Not Resolved]
  - Off label use [Unknown]
  - Drug interaction [Unknown]
  - Status epilepticus [Recovering/Resolving]
